FAERS Safety Report 4821650-4 (Version None)
Quarter: 2005Q4

REPORT INFORMATION
  Report Type: 
  Country: None (occurrence: None)
  Receive Date: 20051107
  Receipt Date: 20050930
  Transmission Date: 20060501
  Serious: Yes (Life-Threatening, Hospitalization, Other)
  Sender: FDA-Public Use
  Company Number: US-MERCK-0510USA00485

PATIENT
  Age: 66 Year
  Sex: Female
  Weight: 55 kg

DRUGS (12)
  1. ZOCOR [Suspect]
     Indication: HYPERLIPIDAEMIA
     Route: 048
     Dates: end: 20050801
  2. BIAXIN [Concomitant]
     Indication: HELICOBACTER INFECTION
     Route: 065
     Dates: end: 20050801
  3. [THERAPY UNSPECIFIED] [Concomitant]
     Indication: HELICOBACTER INFECTION
     Route: 065
  4. ZETIA [Concomitant]
     Route: 048
     Dates: end: 20050801
  5. COZAAR [Concomitant]
     Route: 048
  6. FELODIPINE [Concomitant]
     Route: 065
  7. DIOVAN [Concomitant]
     Route: 065
  8. ACIPHEX [Concomitant]
     Route: 065
  9. INSULIN [Concomitant]
     Route: 065
  10. NEURONTIN [Concomitant]
     Route: 065
  11. HYDROCODONE BITARTRATE [Concomitant]
     Route: 065
  12. [THERAPY UNSPECIFIED] [Concomitant]
     Route: 065

REACTIONS (8)
  - ESCHERICHIA URINARY TRACT INFECTION [None]
  - HELICOBACTER INFECTION [None]
  - HYPOMAGNESAEMIA [None]
  - IRON DEFICIENCY ANAEMIA [None]
  - MICROCYTOSIS [None]
  - RENAL FAILURE ACUTE [None]
  - RHABDOMYOLYSIS [None]
  - TRANSAMINASES INCREASED [None]
